FAERS Safety Report 8015297-9 (Version None)
Quarter: 2011Q4

REPORT INFORMATION
  Report Type: 
  Country: None (occurrence: None)
  Receive Date: 20111230
  Receipt Date: 20111223
  Transmission Date: 20120403
  Serious: Yes (Death, Hospitalization)
  Sender: FDA-Public Use
  Company Number: US-VERTEX PHARMACEUTICALS INC.-AE-2011-003264

PATIENT
  Sex: Male

DRUGS (3)
  1. INCIVEK [Suspect]
     Indication: HEPATITIS C
     Route: 048
  2. INTERFERON [Concomitant]
     Indication: HEPATITIS C
  3. RIBAVIRIN [Concomitant]
     Indication: HEPATITIS C

REACTIONS (5)
  - RENAL FAILURE [None]
  - PANCYTOPENIA [None]
  - ACUTE RESPIRATORY DISTRESS SYNDROME [None]
  - RASH GENERALISED [None]
  - SEPSIS [None]
